FAERS Safety Report 5313869-3 (Version None)
Quarter: 2007Q2

REPORT INFORMATION
  Report Type: 
  Country: None (occurrence: None)
  Receive Date: 20070501
  Receipt Date: 20070423
  Transmission Date: 20071010
  Serious: Yes (Hospitalization)
  Sender: FDA-Public Use
  Company Number: DE-JNJFOC-20070303632

PATIENT
  Age: 66 Year
  Sex: Female

DRUGS (1)
  1. TAVANIC [Suspect]
     Indication: NASOPHARYNGITIS
     Route: 048
     Dates: start: 20070305, end: 20070306

REACTIONS (4)
  - BLOOD PRESSURE DECREASED [None]
  - ELECTROCARDIOGRAM CHANGE [None]
  - FATIGUE [None]
  - TACHYCARDIA [None]
